FAERS Safety Report 6831926-7 (Version None)
Quarter: 2010Q3

REPORT INFORMATION
  Report Type: 
  Country: None (occurrence: None)
  Receive Date: 20100712
  Receipt Date: 20100630
  Transmission Date: 20110219
  Serious: Yes (Other)
  Sender: FDA-Public Use
  Company Number: US-PFIZER INC-2009150998

PATIENT
  Sex: Female
  Weight: 48.073 kg

DRUGS (6)
  1. GEODON [Suspect]
     Indication: BIPOLAR DISORDER
     Dosage: 80 MG, 2X/DAY
     Route: 048
     Dates: start: 20080801, end: 20080901
  2. GEODON [Suspect]
     Indication: DEPRESSION
  3. LUNESTA [Concomitant]
     Dosage: UNK
  4. XANAX [Concomitant]
     Dosage: UNK
  5. TRAZODONE [Concomitant]
     Indication: BIPOLAR DISORDER
     Dosage: UNK
  6. STRATTERA [Concomitant]
     Indication: BIPOLAR DISORDER
     Dosage: UNK
     Route: 048

REACTIONS (12)
  - CONDITION AGGRAVATED [None]
  - CRYING [None]
  - DOPAMINE DYSREGULATION SYNDROME [None]
  - DYSTONIA [None]
  - EMOTIONAL DISORDER [None]
  - GAIT DISTURBANCE [None]
  - IMMUNE SYSTEM DISORDER [None]
  - MYALGIA [None]
  - OPISTHOTONUS [None]
  - SUICIDAL IDEATION [None]
  - TARDIVE DYSKINESIA [None]
  - WEIGHT DECREASED [None]
